FAERS Safety Report 10504338 (Version 1)
Quarter: 2014Q4

REPORT INFORMATION
  Report Type: Spontaneous
  Country: US (occurrence: None)
  Receive Date: 20141007
  Receipt Date: 20141007
  Transmission Date: 20150528
  Serious: Yes (Hospitalization)
  Sender: FDA-Public Use
  Company Number: None

PATIENT
  Age: 81 Year
  Sex: Male
  Weight: 87.4 kg

DRUGS (1)
  1. WARFARIN [Suspect]
     Active Substance: WARFARIN
     Indication: ATRIAL FIBRILLATION
     Route: 048
     Dates: start: 20060630, end: 20131218

REACTIONS (4)
  - Haematochezia [None]
  - Haemoglobin decreased [None]
  - Gastric haemorrhage [None]
  - Hunger [None]

NARRATIVE: CASE EVENT DATE: 20131218
